FAERS Safety Report 8302683-2 (Version None)
Quarter: 2012Q2

REPORT INFORMATION
  Report Type: 
  Country: None (occurrence: None)
  Receive Date: 20120420
  Receipt Date: 20120410
  Transmission Date: 20120825
  Serious: Yes (Death, Hospitalization)
  Sender: FDA-Public Use
  Company Number: ES-CELGENEUS-144-50794-12041082

PATIENT
  Sex: Male
  Weight: 110 kg

DRUGS (8)
  1. ITRACONAZOLE [Concomitant]
     Route: 065
  2. PIPERACILLIN AND TAZOBACTAM [Concomitant]
     Route: 065
  3. MEROPENEM [Concomitant]
     Route: 065
  4. AMIKACIN [Concomitant]
     Route: 065
  5. MORPHINE CHLORIDE [Concomitant]
     Route: 065
  6. VANCOMYCIN [Concomitant]
     Route: 065
  7. ONDANSETRON [Concomitant]
     Indication: ANTIEMETIC SUPPORTIVE CARE
     Route: 065
     Dates: start: 20100301, end: 20100303
  8. VIDAZA [Suspect]
     Indication: ACUTE MYELOID LEUKAEMIA
     Dates: start: 20100301, end: 20100303

REACTIONS (1)
  - ACUTE MYELOID LEUKAEMIA [None]
